FAERS Safety Report 19840122 (Version 1)
Quarter: 2021Q3

REPORT INFORMATION
  Report Type: Spontaneous
  Country: US (occurrence: US)
  Receive Date: 20210916
  Receipt Date: 20210916
  Transmission Date: 20211014
  Serious: Yes (Disabling)
  Sender: FDA-Public Use
  Company Number: None

PATIENT
  Age: 67 Year
  Sex: Male
  Weight: 82.35 kg

DRUGS (13)
  1. DUTASTERIDE. [Suspect]
     Active Substance: DUTASTERIDE
     Indication: PROSTATOMEGALY
     Dosage: ?          QUANTITY:1 CAPSULE(S);?
     Route: 048
     Dates: start: 20210801, end: 20210912
  2. PROBIOTIC [Concomitant]
     Active Substance: PROBIOTICS NOS
  3. PSYLLIUM [Concomitant]
     Active Substance: PLANTAGO SEED
  4. GLUCOSAMINE [Concomitant]
     Active Substance: GLUCOSAMINE
  5. LEXAPRO 15 MG [Concomitant]
  6. BETAMETHASONE DIPROPIONATE OINTMENT [Concomitant]
     Active Substance: BETAMETHASONE DIPROPIONATE
  7. MULTIVITAMIN [Concomitant]
     Active Substance: VITAMINS
  8. VITAMIN D3 [Concomitant]
     Active Substance: CHOLECALCIFEROL
  9. NORITATE CREAM 1% [Concomitant]
  10. LISIN/HCTZ 20/12.5MG [Concomitant]
  11. CLONAZEPAM 0.5MG [Concomitant]
     Active Substance: CLONAZEPAM
  12. ASPIRIN. [Concomitant]
     Active Substance: ASPIRIN
  13. FISH OIL [Concomitant]
     Active Substance: FISH OIL

REACTIONS (8)
  - Back pain [None]
  - Constipation [None]
  - Burning sensation [None]
  - Asthenia [None]
  - Anxiety [None]
  - Perineal pain [None]
  - Fatigue [None]
  - Nervousness [None]

NARRATIVE: CASE EVENT DATE: 20210907
